FAERS Safety Report 20194441 (Version 4)
Quarter: 2022Q1

REPORT INFORMATION
  Report Type: Spontaneous
  Country: DE (occurrence: DE)
  Receive Date: 20211216
  Receipt Date: 20220105
  Transmission Date: 20220423
  Serious: Yes (Death, Hospitalization, Other)
  Sender: FDA-Public Use
  Company Number: DE-MYLANLABS-2021M1092920

PATIENT
  Age: 54 Year
  Sex: Male

DRUGS (8)
  1. FONDAPARINUX [Suspect]
     Active Substance: FONDAPARINUX
     Indication: Thrombocytopenia
     Dosage: UNK
  2. FONDAPARINUX [Suspect]
     Active Substance: FONDAPARINUX
     Indication: Anticoagulant therapy
     Dosage: 7.5 MILLIGRAM
     Route: 058
  3. FONDAPARINUX [Suspect]
     Active Substance: FONDAPARINUX
     Dosage: UNK, QD
     Route: 058
  4. DANAPAROID [Suspect]
     Active Substance: DANAPAROID
     Indication: Thrombocytopenia
     Dosage: UNK
  5. ASTRAZENECA COVID-19 VACCINE [Suspect]
     Active Substance: AZD-1222
     Indication: Immunisation
     Dosage: UNK
  6. ARGATROBAN [Suspect]
     Active Substance: ARGATROBAN
     Indication: Anticoagulant therapy
     Dosage: UNK (2 MICROGRAM PER KILOGRAM PER MINUTE)
  7. TINZAPARIN SODIUM [Concomitant]
     Active Substance: TINZAPARIN SODIUM
     Indication: Anticoagulant therapy
     Dosage: 12 INTERNATIONAL UNIT, QD
     Route: 058
  8. DANAPAROID [Concomitant]
     Active Substance: DANAPAROID
     Indication: Anticoagulant therapy
     Dosage: 750 MILLIGRAM
     Route: 058

REACTIONS (9)
  - Thrombosis with thrombocytopenia syndrome [Fatal]
  - Off label use [Fatal]
  - Cerebral haemorrhage [Fatal]
  - Cerebral venous sinus thrombosis [Fatal]
  - Haemorrhage intracranial [Fatal]
  - Disseminated intravascular coagulation [Fatal]
  - Epilepsy [Unknown]
  - Pneumonia [Unknown]
  - Hepatotoxicity [Unknown]
